FAERS Safety Report 7210424-5 (Version None)
Quarter: 2011Q1

REPORT INFORMATION
  Report Type: 
  Country: None (occurrence: None)
  Receive Date: 20110105
  Receipt Date: 20101129
  Transmission Date: 20110831
  Serious: Yes (Hospitalization, Other)
  Sender: FDA-Public Use
  Company Number: US-BAYER-201033249NA

PATIENT
  Sex: Female
  Weight: 80 kg

DRUGS (6)
  1. YASMIN [Suspect]
     Route: 048
     Dates: start: 20020101, end: 20040101
  2. MOTRIN [Concomitant]
  3. CLARITIN [Concomitant]
     Indication: CHRONIC SINUSITIS
  4. YAZ [Suspect]
     Route: 048
     Dates: start: 20040101, end: 20080101
  5. FIONNAL NOS (UNCODEABLE ^UNCLASSIFIABLE^) [Concomitant]
     Indication: MIGRAINE WITHOUT AURA
  6. FIONNAL NOS (UNCODEABLE ^UNCLASSIFIABLE^) [Concomitant]
     Indication: FACIAL PARESIS

REACTIONS (10)
  - DEEP VEIN THROMBOSIS [None]
  - PAIN IN EXTREMITY [None]
  - PULMONARY EMBOLISM [None]
  - DIZZINESS [None]
  - SYNCOPE [None]
  - PALPITATIONS [None]
  - THROMBOSIS [None]
  - LOSS OF CONSCIOUSNESS [None]
  - DYSPNOEA [None]
  - CHEST PAIN [None]
